FAERS Safety Report 13542345 (Version 1)
Quarter: 2017Q2

REPORT INFORMATION
  Report Type: Spontaneous
  Country: US (occurrence: US)
  Receive Date: 20170512
  Receipt Date: 20170512
  Transmission Date: 20170830
  Serious: No
  Sender: FDA-Public Use
  Company Number: US-ROCHE-788082

PATIENT
  Age: 64 Year
  Sex: Female

DRUGS (1)
  1. AVASTIN [Suspect]
     Active Substance: BEVACIZUMAB
     Indication: OVARIAN CANCER
     Dosage: 9 ROUNDS OF BEVACIZUMAB
     Route: 065

REACTIONS (5)
  - Headache [Unknown]
  - Laryngitis [Unknown]
  - Productive cough [Unknown]
  - Vocal cord inflammation [Unknown]
  - Vocal cord disorder [Unknown]
